FAERS Safety Report 20119241 (Version 1)
Quarter: 2021Q4

REPORT INFORMATION
  Report Type: Spontaneous
  Country: US (occurrence: None)
  Receive Date: 20211126
  Receipt Date: 20211126
  Transmission Date: 20220304
  Serious: Yes (Hospitalization)
  Sender: FDA-Public Use
  Company Number: None

PATIENT
  Age: 36 Year
  Sex: Female
  Weight: 148.5 kg

DRUGS (5)
  1. CASIRIVIMAB\IMDEVIMAB [Suspect]
     Active Substance: CASIRIVIMAB\IMDEVIMAB
     Indication: COVID-19
     Dosage: OTHER FREQUENCY : ONCE;?
     Dates: start: 20211123
  2. SYNTHROID [Concomitant]
     Active Substance: LEVOTHYROXINE SODIUM
  3. PRENATAL [Concomitant]
  4. FISH OIL [Concomitant]
  5. TYLENOL [Concomitant]

REACTIONS (6)
  - Pyrexia [None]
  - Tachycardia [None]
  - Oxygen saturation decreased [None]
  - Dyspnoea [None]
  - Cough [None]
  - Infusion related reaction [None]

NARRATIVE: CASE EVENT DATE: 20211123
